FAERS Safety Report 10796031 (Version 2)
Quarter: 2015Q1

REPORT INFORMATION
  Report Type: Spontaneous
  Country: BR (occurrence: BR)
  Receive Date: 20150216
  Receipt Date: 20150227
  Transmission Date: 20150721
  Serious: Yes (Disabling, Other)
  Sender: FDA-Public Use
  Company Number: BR-ROCHE-1535451

PATIENT
  Sex: Female
  Weight: 59 kg

DRUGS (5)
  1. RIVOTRIL [Suspect]
     Active Substance: CLONAZEPAM
     Indication: SEIZURE
     Dosage: 20 DROPS IN THE MORNING, 15 DROPS IN THE AFTERNOON AND 25 DROPS AT NIGHT.
     Route: 065
     Dates: end: 2002
  2. CARBAMAZEPINE. [Suspect]
     Active Substance: CARBAMAZEPINE
     Indication: SEIZURE
     Dosage: TABLET IN THE MORNING, HALF TABLET IN THE AFTERNOON AND HALF TABLET AT NIGHT,
     Route: 065
     Dates: start: 2002
  3. FRONTAL [Concomitant]
     Active Substance: ALPRAZOLAM
     Indication: PANIC DISORDER
     Dosage: HALF TABLET IN THE MORNING AND HALF TABLET AT NIGHT
     Route: 065
  4. DEPAKOTE [Suspect]
     Active Substance: DIVALPROEX SODIUM
     Indication: SEIZURE
     Dosage: TWO CAPSULES IN THE MORNING AND TWO AT NIGHT,
     Route: 065
     Dates: start: 2002
  5. RIVOTRIL [Suspect]
     Active Substance: CLONAZEPAM
     Indication: ATROPHY
     Dosage: 20 DROPS IN THE MORNING, 15 DROPS IN THE AFTERNOON AND 25 DROPS AT NIGHT.
     Route: 065
     Dates: start: 2002

REACTIONS (5)
  - Central nervous system lesion [Recovered/Resolved with Sequelae]
  - Cardiac arrest [Unknown]
  - Panic disorder [Not Recovered/Not Resolved]
  - Visual impairment [Not Recovered/Not Resolved]
  - Seizure [Not Recovered/Not Resolved]

NARRATIVE: CASE EVENT DATE: 2002
